FAERS Safety Report 22131214 (Version 1)
Quarter: 2023Q1

REPORT INFORMATION
  Report Type: Spontaneous
  Country: US (occurrence: None)
  Receive Date: 20230322
  Receipt Date: 20230322
  Transmission Date: 20230418
  Serious: Yes (Other)
  Sender: FDA-Public Use
  Company Number: None

PATIENT
  Age: 14 Year
  Sex: Female

DRUGS (2)
  1. LURASIDONE [Suspect]
     Active Substance: LURASIDONE
     Indication: Bipolar disorder
     Dosage: FREQUENCY : DAILY;?
     Route: 048
  2. LURASIDONE [Concomitant]
     Active Substance: LURASIDONE
     Dates: start: 20230314

REACTIONS (2)
  - Product substitution issue [None]
  - Bipolar disorder [None]

NARRATIVE: CASE EVENT DATE: 20230314
